FAERS Safety Report 10358503 (Version 5)
Quarter: 2014Q3

REPORT INFORMATION
  Report Type: Spontaneous
  Country: US (occurrence: US)
  Receive Date: 20140801
  Receipt Date: 20140925
  Transmission Date: 20150326
  Serious: Yes (Hospitalization)
  Sender: FDA-Public Use
  Company Number: US-ACTELION-A-NJ2014-102724

PATIENT
  Age: 49 Year
  Sex: Female

DRUGS (3)
  1. OPSUMIT [Suspect]
     Active Substance: MACITENTAN
     Indication: PULMONARY ARTERIAL HYPERTENSION
     Dosage: 10 MG, QD
     Route: 048
     Dates: start: 20140128
  2. REMODULIN [Concomitant]
     Active Substance: TREPROSTINIL
     Dosage: 12 NG/KG, PER MIN
     Route: 017
     Dates: start: 201405
  3. REVATIO [Concomitant]
     Active Substance: SILDENAFIL CITRATE

REACTIONS (9)
  - Pyrexia [Recovered/Resolved]
  - Feeling hot [Recovering/Resolving]
  - Device related infection [Recovered/Resolved]
  - Medical device change [Unknown]
  - Confusional state [Recovered/Resolved]
  - Dizziness [Unknown]
  - Gastrointestinal infection [Unknown]
  - Mental status changes [Recovered/Resolved]
  - Sepsis [Recovered/Resolved]

NARRATIVE: CASE EVENT DATE: 20140721
